FAERS Safety Report 9668922 (Version 1)
Quarter: 2013Q4

REPORT INFORMATION
  Report Type: Spontaneous
  Country: US (occurrence: None)
  Receive Date: 20131104
  Receipt Date: 20131104
  Transmission Date: 20140711
  Serious: No
  Sender: FDA-Public Use
  Company Number: None

PATIENT
  Age: 34 Year
  Sex: Male
  Weight: 82.56 kg

DRUGS (1)
  1. METHYLPHENIDATE ER [Suspect]
     Indication: DYSTHYMIC DISORDER
     Dosage: 1 PILL, ONCE DAILY, TAKEN BY MOUTH
     Route: 048
     Dates: start: 20131025, end: 20131103

REACTIONS (6)
  - Irritability [None]
  - Agitation [None]
  - Headache [None]
  - Hunger [None]
  - Product substitution issue [None]
  - Drug ineffective [None]
